FAERS Safety Report 25914467 (Version 2)
Quarter: 2025Q4

REPORT INFORMATION
  Report Type: Report from Study
  Country: CA (occurrence: CA)
  Receive Date: 20251013
  Receipt Date: 20251016
  Transmission Date: 20260118
  Serious: Yes (Other)
  Sender: ABBVIE
  Company Number: CA-ABBVIE-6496979

PATIENT
  Age: 72 Year
  Sex: Female

DRUGS (1)
  1. SKYRIZI [Suspect]
     Active Substance: RISANKIZUMAB-RZAA
     Indication: Crohn^s disease
     Dosage: 3 INTRAVENOUS DOSES THEN 360 MG SUBCUTANEOUS EVERY 8 WEEKS
     Route: 042
     Dates: start: 20250912

REACTIONS (4)
  - Salpingo-oophorectomy [Recovering/Resolving]
  - Procedural pain [Recovering/Resolving]
  - Diarrhoea [Recovering/Resolving]
  - Congenital intestinal malformation [Recovering/Resolving]

NARRATIVE: CASE EVENT DATE: 20250101
